FAERS Safety Report 10420896 (Version 1)
Quarter: 2014Q3

REPORT INFORMATION
  Report Type: Spontaneous
  Country: US (occurrence: None)
  Receive Date: 20140829
  Receipt Date: 20140829
  Transmission Date: 20150326
  Serious: No
  Sender: FDA-Public Use
  Company Number: None

PATIENT
  Age: 62 Year
  Sex: Female
  Weight: 101.8 kg

DRUGS (2)
  1. CYTARABINE. [Suspect]
     Active Substance: CYTARABINE
     Dates: start: 20130802
  2. DAUNORUBICIN [Suspect]
     Active Substance: DAUNORUBICIN
     Dates: start: 20130801

REACTIONS (7)
  - Pyrexia [None]
  - Dyspnoea exertional [None]
  - Abdominal pain [None]
  - Asthenia [None]
  - Cholecystitis [None]
  - Sepsis [None]
  - Post procedural haemorrhage [None]

NARRATIVE: CASE EVENT DATE: 20140802
